FAERS Safety Report 16128567 (Version 1)
Quarter: 2019Q1

REPORT INFORMATION
  Report Type: Spontaneous
  Country: US (occurrence: US)
  Receive Date: 20190328
  Receipt Date: 20190328
  Transmission Date: 20190418
  Serious: Yes (Disabling)
  Sender: FDA-Public Use
  Company Number: US-OTSUKA-2019_008715

PATIENT
  Sex: Female
  Weight: 100 kg

DRUGS (2)
  1. ABILIFY [Suspect]
     Active Substance: ARIPIPRAZOLE
     Indication: PRODUCT USED FOR UNKNOWN INDICATION
     Dosage: UNK
     Route: 065
  2. ABILIFY [Suspect]
     Active Substance: ARIPIPRAZOLE
     Dosage: UNK, DOSE INCREASED
     Route: 065

REACTIONS (6)
  - Therapy cessation [Unknown]
  - Weight decreased [Unknown]
  - Restless legs syndrome [Not Recovered/Not Resolved]
  - Akathisia [Not Recovered/Not Resolved]
  - Speech disorder [Unknown]
  - Tardive dyskinesia [Not Recovered/Not Resolved]
